FAERS Safety Report 7214286-1 (Version None)
Quarter: 2011Q1

REPORT INFORMATION
  Report Type: 
  Country: None (occurrence: None)
  Receive Date: 20110107
  Receipt Date: 20110104
  Transmission Date: 20110831
  Serious: Yes (Hospitalization, Other)
  Sender: FDA-Public Use
  Company Number: US-BRISTOL-MYERS SQUIBB COMPANY-15436884

PATIENT
  Sex: Female

DRUGS (1)
  1. AVALIDE [Suspect]
     Dosage: DOSE INCRESED TO 500MG. DURATION-1YEAR.

REACTIONS (6)
  - RENAL FAILURE [None]
  - CARDIOMYOPATHY [None]
  - APPARENT DEATH [None]
  - CARDIAC FAILURE [None]
  - HEPATIC FAILURE [None]
  - ARRHYTHMIA [None]
